FAERS Safety Report 12091230 (Version 1)
Quarter: 2016Q1

REPORT INFORMATION
  Report Type: Spontaneous
  Country: US (occurrence: US)
  Receive Date: 20160218
  Receipt Date: 20160218
  Transmission Date: 20160526
  Serious: Yes (Other)
  Sender: FDA-Public Use
  Company Number: US-MYLANLABS-2016M1006081

PATIENT

DRUGS (1)
  1. IBUPROFEN. [Suspect]
     Active Substance: IBUPROFEN
     Indication: ARTHRALGIA
     Route: 065

REACTIONS (5)
  - Self-medication [Unknown]
  - Gastrointestinal disorder [Recovering/Resolving]
  - Gastrointestinal anastomotic complication [Recovering/Resolving]
  - Iron deficiency anaemia [Recovered/Resolved]
  - Abdominal pain [Recovering/Resolving]
